FAERS Safety Report 12613438 (Version 1)
Quarter: 2016Q3

REPORT INFORMATION
  Report Type: Spontaneous
  Country: US (occurrence: None)
  Receive Date: 20160801
  Receipt Date: 20160801
  Transmission Date: 20161109
  Serious: Yes (Disabling)
  Sender: FDA-Public Use
  Company Number: None

PATIENT
  Age: 67 Year
  Sex: Female
  Weight: 58.06 kg

DRUGS (24)
  1. CALCIUM [Concomitant]
     Active Substance: CALCIUM
  2. DIGESTIVE ENZYME COMPLEX [Concomitant]
  3. ULTRA-COX-2 COMBO [Concomitant]
  4. LAMICTAL [Concomitant]
     Active Substance: LAMOTRIGINE
  5. COMPOUNDED PROGESTERONE/TESTOSTERONE [Concomitant]
  6. CELEBREX [Concomitant]
     Active Substance: CELECOXIB
  7. MAGNESIUM [Concomitant]
     Active Substance: MAGNESIUM
  8. K-2 [Concomitant]
  9. INFLAMMA-LESS [Concomitant]
  10. BRAIN AWAKE COMPLEX [Concomitant]
  11. CIPROFLOXACIN, 500 MG [Suspect]
     Active Substance: CIPROFLOXACIN
     Indication: URINARY TRACT INFECTION
     Route: 048
     Dates: start: 20150715, end: 20150719
  12. BOSWELLA ANTIINFLAMATORY COMPLEX [Concomitant]
  13. V-C [Concomitant]
  14. COQ10 [Concomitant]
     Active Substance: UBIDECARENONE
  15. OMEGA-3 ACIDS [Concomitant]
     Active Substance: OMEGA-3 FATTY ACIDS
  16. D-3 [Concomitant]
     Active Substance: CHOLECALCIFEROL
  17. GLUCOSOMINE [Concomitant]
  18. MULTI MINERAL-VITAMIN [Concomitant]
  19. PRESERVISION [Concomitant]
     Active Substance: MINERALS\VITAMINS
  20. ASTAXANTHIN [Concomitant]
  21. BIOTIN [Concomitant]
     Active Substance: BIOTIN
  22. WELLBUTRIN [Concomitant]
     Active Substance: BUPROPION HYDROCHLORIDE
  23. BROMELAIN [Concomitant]
     Active Substance: BROMELAINS
  24. ALPHA LIPOIC ACID [Concomitant]
     Active Substance: .ALPHA.-LIPOIC ACID

REACTIONS (16)
  - Muscle tightness [None]
  - Gastrointestinal disorder [None]
  - Pain in extremity [None]
  - Insomnia [None]
  - Arthropathy [None]
  - Asthenia [None]
  - Arthralgia [None]
  - Depression [None]
  - Toxicity to various agents [None]
  - Confusional state [None]
  - Gait disturbance [None]
  - Sciatica [None]
  - Tendonitis [None]
  - Stress [None]
  - Joint crepitation [None]
  - Activities of daily living impaired [None]

NARRATIVE: CASE EVENT DATE: 20150715
